FAERS Safety Report 8863283 (Version 2)
Quarter: 2014Q3

REPORT INFORMATION
  Report Type: Report from Study
  Country: US (occurrence: US)
  Receive Date: 20121025
  Receipt Date: 20140904
  Transmission Date: 20150326
  Serious: Yes (Other)
  Sender: FDA-Public Use
  Company Number: US-ROCHE-1137169

PATIENT
  Age: 70 Year
  Sex: Male
  Weight: 152 kg

DRUGS (4)
  1. TYLENOL [Concomitant]
     Active Substance: ACETAMINOPHEN
     Route: 048
  2. RITUXAN [Suspect]
     Active Substance: RITUXIMAB
     Indication: CHRONIC LYMPHOCYTIC LEUKAEMIA
     Dosage: 1 DOSE
     Route: 042
  3. PROCRIT [Concomitant]
     Active Substance: ERYTHROPOIETIN
  4. RITUXAN [Suspect]
     Active Substance: RITUXIMAB
     Dosage: 3 DOSES
     Route: 042

REACTIONS (8)
  - Haemorrhage [Unknown]
  - Tenderness [Unknown]
  - White blood cell count increased [Unknown]
  - Fatigue [Unknown]
  - Pyrexia [Unknown]
  - Lymphadenopathy [Unknown]
  - Abdominal pain [Unknown]
  - Contusion [Unknown]

NARRATIVE: CASE EVENT DATE: 20010424
